FAERS Safety Report 4754606-0 (Version None)
Quarter: 2005Q3

REPORT INFORMATION
  Report Type: 
  Country: None (occurrence: None)
  Receive Date: 20050829
  Receipt Date: 20050823
  Transmission Date: 20060218
  Serious: Yes (Disabling)
  Sender: FDA-Public Use
  Company Number: US-GLAXOSMITHKLINE-A0571485A

PATIENT
  Sex: Female

DRUGS (1)
  1. WELLBUTRIN XL [Suspect]
     Indication: DEPRESSION
     Route: 048
     Dates: start: 20050820, end: 20050823

REACTIONS (5)
  - ASTHENIA [None]
  - DYSSTASIA [None]
  - HEADACHE [None]
  - HYPOAESTHESIA [None]
  - SPEECH DISORDER [None]
